FAERS Safety Report 7039473-7 (Version None)
Quarter: 2010Q4

REPORT INFORMATION
  Report Type: 
  Country: None (occurrence: None)
  Receive Date: 20101012
  Receipt Date: 20101005
  Transmission Date: 20110411
  Serious: Yes (Other)
  Sender: FDA-Public Use
  Company Number: RU-ROCHE-730930

PATIENT
  Sex: Male

DRUGS (1)
  1. FUZEON [Suspect]
     Route: 058
     Dates: start: 20100807

REACTIONS (4)
  - CD4 LYMPHOCYTES DECREASED [None]
  - GENERAL PHYSICAL HEALTH DETERIORATION [None]
  - INJECTION SITE INDURATION [None]
  - PRODUCT COUNTERFEIT [None]
